FAERS Safety Report 22638564 (Version 1)
Quarter: 2023Q2

REPORT INFORMATION
  Report Type: Spontaneous
  Country: US (occurrence: None)
  Receive Date: 20230623
  Receipt Date: 20230623
  Transmission Date: 20230721
  Serious: Yes (Hospitalization)
  Sender: FDA-Public Use
  Company Number: None

PATIENT
  Age: 56 Year
  Sex: Male

DRUGS (4)
  1. SIROLIMUS [Suspect]
     Active Substance: SIROLIMUS
     Dosage: FREQUENCY : DAILY;?
     Route: 048
  2. TACROLIMUS [Suspect]
     Active Substance: TACROLIMUS
     Dosage: FREQUENCY : DAILY;?
     Route: 048
  3. Citracal Petites/Vitamin D Oral Tab [Concomitant]
  4. Valacyclovir 500 mg tablet [Concomitant]

REACTIONS (1)
  - Diarrhoea [None]

NARRATIVE: CASE EVENT DATE: 20230623
